FAERS Safety Report 5143002-2 (Version None)
Quarter: 2006Q4

REPORT INFORMATION
  Report Type: 
  Country: None (occurrence: None)
  Receive Date: 20061103
  Receipt Date: 20060509
  Transmission Date: 20070319
  Serious: Yes (Hospitalization)
  Sender: FDA-Public Use
  Company Number: US-ELI_LILLY_AND_COMPANY-US200609000730

PATIENT
  Sex: Male
  Weight: 100.23 kg

DRUGS (1)
  1. ZYPREXA [Suspect]
     Dosage: UNK, UNK
     Route: 065
     Dates: start: 20030101

REACTIONS (2)
  - DIABETES MELLITUS [None]
  - PNEUMONIA [None]
